FAERS Safety Report 7498725-7 (Version None)
Quarter: 2011Q2

REPORT INFORMATION
  Report Type: 
  Country: None (occurrence: None)
  Receive Date: 20110524
  Receipt Date: 20110511
  Transmission Date: 20111010
  Serious: Yes (Other)
  Sender: FDA-Public Use
  Company Number: US-AMGEN-USASP2011018582

PATIENT
  Sex: Female

DRUGS (7)
  1. ARANESP [Suspect]
     Dosage: 100 A?G, QWK
     Route: 042
     Dates: start: 20110330, end: 20110426
  2. ARANESP [Suspect]
     Dosage: 160 A?G, QWK
     Dates: start: 20110427
  3. ARANESP [Suspect]
     Dosage: 25 A?G, QWK
     Route: 042
     Dates: start: 20110302, end: 20110315
  4. TACROLIMUS [Concomitant]
     Indication: RENAL TRANSPLANT
     Dosage: 3 MG, BID
     Route: 048
     Dates: start: 20020101
  5. ARANESP [Suspect]
     Dosage: 60 A?G, QWK
     Route: 042
     Dates: start: 20110316, end: 20110322
  6. ARANESP [Suspect]
     Indication: ANAEMIA
     Dosage: 25 A?G, Q2WK
     Route: 042
     Dates: start: 20110216, end: 20110301
  7. ARANESP [Suspect]
     Dosage: 40 A?G, QWK
     Route: 042
     Dates: start: 20110323, end: 20110329

REACTIONS (3)
  - OVARIAN CYST RUPTURED [None]
  - DRUG INEFFECTIVE [None]
  - ANTI-ERYTHROPOIETIN ANTIBODY [None]
